FAERS Safety Report 8153637-0 (Version None)
Quarter: 2012Q1

REPORT INFORMATION
  Report Type: 
  Country: None (occurrence: None)
  Receive Date: 20120221
  Receipt Date: 20120206
  Transmission Date: 20120608
  Serious: Yes (Other)
  Sender: FDA-Public Use
  Company Number: GB-WATSON-2012-02280

PATIENT
  Age: 80 Year
  Sex: Male

DRUGS (8)
  1. DOUBLEBASE [Concomitant]
     Indication: PRODUCT USED FOR UNKNOWN INDICATION
     Route: 065
  2. LAMOTRIGINE [Suspect]
     Indication: EPILEPSY
     Dosage: 25 MG, DAILY, MOST SUSPECTED LONG-TERM STILL ON LOW -DOSE
     Route: 065
  3. TAMSULOSIN HCL [Concomitant]
     Indication: PRODUCT USED FOR UNKNOWN INDICATION
     Dosage: 400 UG, UNKNOWN LONG TERM
  4. LEVOTHYROXINE SODIUM [Concomitant]
     Indication: PRODUCT USED FOR UNKNOWN INDICATION
     Dosage: 25 UG, DAILY
     Route: 065
     Dates: start: 20120125
  5. WARFARIN [Concomitant]
     Indication: PRODUCT USED FOR UNKNOWN INDICATION
     Dosage: AS PER INR
     Route: 065
  6. LATANOPROST [Concomitant]
     Indication: GLAUCOMA
     Dosage: LONG TERM
     Route: 065
  7. RAMIPRIL [Suspect]
     Indication: HYPERTENSION
     Dosage: 1.25 MG, DAILY
     Route: 048
     Dates: start: 20120124
  8. FINASTERIDE [Concomitant]
     Indication: PRODUCT USED FOR UNKNOWN INDICATION
     Dosage: 5 MG, DAILY, LONG TERM
     Route: 065

REACTIONS (3)
  - HAEMOGLOBIN DECREASED [None]
  - MYELODYSPLASTIC SYNDROME [None]
  - WHITE BLOOD CELL COUNT DECREASED [None]
